FAERS Safety Report 21264812 (Version 1)
Quarter: 2022Q3

REPORT INFORMATION
  Report Type: Report from Study
  Country: CA (occurrence: None)
  Receive Date: 20220829
  Receipt Date: 20220829
  Transmission Date: 20221027
  Serious: Yes (Other)
  Sender: FDA-Public Use
  Company Number: CA-PFIZER INC-202201082581

PATIENT
  Age: 57 Year
  Sex: Male
  Weight: 85 kg

DRUGS (9)
  1. METHOTREXATE [Suspect]
     Active Substance: METHOTREXATE
     Indication: Psoriatic arthropathy
     Route: 065
  2. METHOTREXATE [Suspect]
     Active Substance: METHOTREXATE
     Route: 065
  3. METHOTREXATE [Suspect]
     Active Substance: METHOTREXATE
     Route: 065
  4. SILIQ [Suspect]
     Active Substance: BRODALUMAB
     Indication: Psoriasis
     Route: 058
  5. SILIQ [Suspect]
     Active Substance: BRODALUMAB
     Route: 058
  6. SILIQ [Suspect]
     Active Substance: BRODALUMAB
     Route: 058
  7. SILIQ [Suspect]
     Active Substance: BRODALUMAB
     Route: 058
  8. DOVONEX [Concomitant]
     Active Substance: CALCIPOTRIENE
     Indication: Psoriasis
     Route: 065
  9. EDARBI [Concomitant]
     Active Substance: AZILSARTAN KAMEDOXOMIL
     Indication: Hypertension
     Route: 065

REACTIONS (5)
  - Therapeutic product effect incomplete [Recovered/Resolved]
  - Carpal tunnel syndrome [Recovered/Resolved]
  - Dizziness [Recovered/Resolved]
  - Psoriatic arthropathy [Recovered/Resolved]
  - Somnolence [Recovered/Resolved]
